FAERS Safety Report 13744848 (Version 1)
Quarter: 2017Q3

REPORT INFORMATION
  Report Type: Spontaneous
  Country: US (occurrence: US)
  Receive Date: 20170711
  Receipt Date: 20170711
  Transmission Date: 20171127
  Serious: No
  Sender: FDA-Public Use
  Company Number: None

PATIENT
  Age: 28 Year
  Sex: Male
  Weight: 76.5 kg

DRUGS (2)
  1. MAGNESIUM GLYCINATE [Concomitant]
     Active Substance: MAGNESIUM GLYCINATE
  2. CLONAZEPAM. [Suspect]
     Active Substance: CLONAZEPAM
     Indication: INSOMNIA
     Route: 048
     Dates: start: 20150325, end: 20150702

REACTIONS (5)
  - Dyspnoea [None]
  - Panic attack [None]
  - Mood swings [None]
  - Confusional state [None]
  - Muscle spasms [None]

NARRATIVE: CASE EVENT DATE: 20150425
